FAERS Safety Report 4271737-2 (Version None)
Quarter: 2004Q1

REPORT INFORMATION
  Report Type: 
  Country: None (occurrence: None)
  Receive Date: 20040113
  Receipt Date: 20040105
  Transmission Date: 20041129
  Serious: Yes (Hospitalization)
  Sender: FDA-Public Use
  Company Number: 04P-062-0246399-00

PATIENT
  Age: 41 Year
  Sex: Male
  Weight: 75 kg

DRUGS (5)
  1. BIAXIN [Suspect]
     Indication: SUICIDE ATTEMPT
     Dosage: 250 MG, 10 IN 1 D, PER ORAL
     Route: 048
     Dates: start: 20040104, end: 20040104
  2. AGOPTON 30 [Suspect]
     Indication: SUICIDE ATTEMPT
     Dosage: 1 TABLET, 14 IN 1 D, PER ORAL
     Route: 048
     Dates: start: 20040104, end: 20040104
  3. METOCLOPRAMIDE HYDROCHLORIDE [Suspect]
     Indication: SUICIDE ATTEMPT
     Dosage: 1 TABLET, 16 IN 1 D, PER ORAL
     Route: 048
     Dates: start: 20040104, end: 20040104
  4. AMBROXOL (AMBROXOL CHLORIDRATE) [Suspect]
     Indication: SUICIDE ATTEMPT
     Dosage: 1 TABLET, 3 IN 1 D, PER ORAL
     Route: 048
     Dates: start: 20040104, end: 20040104
  5. DIAZEPAM [Suspect]
     Indication: SUICIDE ATTEMPT
     Dosage: 1 TABLET, 7 IN 1 D, PER ORAL
     Route: 048
     Dates: start: 20040104, end: 20040104

REACTIONS (4)
  - HYPOAESTHESIA [None]
  - OVERDOSE [None]
  - SUICIDE ATTEMPT [None]
  - TACHYCARDIA [None]
